FAERS Safety Report 18718290 (Version 1)
Quarter: 2021Q1

REPORT INFORMATION
  Report Type: Spontaneous
  Country: US (occurrence: US)
  Receive Date: 20210108
  Receipt Date: 20210108
  Transmission Date: 20210419
  Serious: Yes (Other)
  Sender: FDA-Public Use
  Company Number: US-AMNEAL PHARMACEUTICALS-2020-AMRX-01575

PATIENT
  Age: 29 Year
  Sex: Female

DRUGS (8)
  1. ELAGOLIX [Suspect]
     Active Substance: ELAGOLIX
     Indication: ENDOMETRIOSIS
     Dosage: 200 MILLIGRAM, BID
     Route: 048
     Dates: start: 20181109, end: 20190701
  2. SODIUM CHLORIDE. [Concomitant]
     Active Substance: SODIUM CHLORIDE
     Indication: NAUSEA
     Dosage: 1000 MILLILITER, ONCE
     Route: 042
     Dates: start: 20190830, end: 20190830
  3. ONDANSETRON [Concomitant]
     Active Substance: ONDANSETRON
     Indication: NAUSEA
     Dosage: 5 MILLIGRAM, ONCE
     Route: 042
     Dates: start: 20190830, end: 20190830
  4. AZITHROMYCIN ANHYDROUS. [Concomitant]
     Active Substance: AZITHROMYCIN ANHYDROUS
     Indication: WHITE BLOOD CELLS URINE POSITIVE
     Dosage: 1000 MILLIGRAM, ONCE
     Route: 048
     Dates: start: 20190830, end: 20190830
  5. ACETAMINOPHEN. [Concomitant]
     Active Substance: ACETAMINOPHEN
     Indication: HEADACHE
     Dosage: 1000 MILLIGRAM, ONCE
     Route: 048
     Dates: start: 20190830, end: 20190830
  6. ACTIVELLA [Suspect]
     Active Substance: ESTRADIOL\NORETHINDRONE ACETATE
     Indication: ENDOMETRIOSIS
     Dosage: 1 DOSAGE FORM, QD
     Route: 048
     Dates: start: 20181109, end: 20190701
  7. VITAMIN D3 [Concomitant]
     Active Substance: CHOLECALCIFEROL
     Indication: VITAMIN D DEFICIENCY
     Dosage: 5000 INTERNATIONAL UNIT, 1X/DAY
     Route: 048
     Dates: start: 20181116
  8. CEFTRIAXONE. [Concomitant]
     Active Substance: CEFTRIAXONE
     Indication: WHITE BLOOD CELLS URINE POSITIVE
     Dosage: 1 GRAM, ONCE
     Route: 042
     Dates: start: 20190830, end: 20190830

REACTIONS (2)
  - Live birth [Unknown]
  - Maternal exposure during pregnancy [Unknown]

NARRATIVE: CASE EVENT DATE: 2019
